FAERS Safety Report 8877485 (Version 2)
Quarter: 2013Q3

REPORT INFORMATION
  Report Type: Spontaneous
  Country: DE (occurrence: None)
  Receive Date: 20121025
  Receipt Date: 20130809
  Transmission Date: 20140515
  Serious: Yes (Death)
  Sender: FDA-Public Use
  Company Number: ACO_32495_2012

PATIENT
  Age: 59 Year
  Sex: Female

DRUGS (3)
  1. FAMPRIDINE [Suspect]
     Indication: MULTIPLE SCLEROSIS
     Route: 048
     Dates: start: 20120518
  2. BETAFERON [Concomitant]
  3. UBRETID (DISTIGMINE BROMIDE) [Concomitant]

REACTIONS (1)
  - Death [None]
